FAERS Safety Report 9965593 (Version 1)
Quarter: 2014Q1

REPORT INFORMATION
  Report Type: Report from Study
  Country: US (occurrence: US)
  Receive Date: 20140305
  Receipt Date: 20140305
  Transmission Date: 20141002
  Serious: Yes (Hospitalization)
  Sender: FDA-Public Use
  Company Number: US-ABBVIE-13P-163-1124578-00

PATIENT
  Age: 65 Year
  Sex: Female

DRUGS (4)
  1. HUMIRA [Suspect]
     Indication: SUBCORNEAL PUSTULAR DERMATOSIS
     Route: 058
     Dates: start: 20130501, end: 20130625
  2. PREDNISONE [Concomitant]
     Indication: SUBCORNEAL PUSTULAR DERMATOSIS
  3. DAPSONE [Concomitant]
     Indication: SUBCORNEAL PUSTULAR DERMATOSIS
  4. GLYBURIDE [Concomitant]
     Indication: DIABETES MELLITUS

REACTIONS (1)
  - Cellulitis [Not Recovered/Not Resolved]
